FAERS Safety Report 15092714 (Version 4)
Quarter: 2018Q4

REPORT INFORMATION
  Report Type: Spontaneous
  Country: DE (occurrence: DE)
  Receive Date: 20180629
  Receipt Date: 20181214
  Transmission Date: 20190204
  Serious: Yes (Life-Threatening, Hospitalization)
  Sender: FDA-Public Use
  Company Number: DE-JNJFOC-20180630677

PATIENT
  Age: 88 Year
  Sex: Male

DRUGS (12)
  1. PIPAMPERONE [Interacting]
     Active Substance: PIPAMPERONE
     Indication: PRODUCT USED FOR UNKNOWN INDICATION
     Route: 048
     Dates: start: 20171126, end: 20171128
  2. ULTIBRO [Concomitant]
     Active Substance: GLYCOPYRRONIUM\INDACATEROL
     Dosage: DOSE: 63/143 UG; FOR YEARS
     Route: 048
  3. SIMVASTATIN. [Concomitant]
     Active Substance: SIMVASTATIN
     Dosage: FOR YEARS
     Route: 048
  4. RISPERIDONE. [Suspect]
     Active Substance: RISPERIDONE
     Indication: PRODUCT USED FOR UNKNOWN INDICATION
     Route: 048
     Dates: start: 20171126, end: 20171127
  5. BISOPROLOL [Interacting]
     Active Substance: BISOPROLOL
     Indication: CARDIAC DISORDER
     Dosage: FOR YEARS
     Route: 048
  6. ASPIRIN. [Concomitant]
     Active Substance: ASPIRIN
     Dosage: FOR YEARS
     Route: 065
  7. NITRENDIPIN [Interacting]
     Active Substance: NITRENDIPINE
     Indication: CARDIAC DISORDER
     Dosage: FOR YEARS
     Route: 048
  8. PANTOZOL [Concomitant]
     Active Substance: PANTOPRAZOLE SODIUM
     Dosage: FOR YEARS
     Route: 048
  9. RISPERIDONE. [Suspect]
     Active Substance: RISPERIDONE
     Indication: PRODUCT USED FOR UNKNOWN INDICATION
     Route: 048
     Dates: start: 20171128
  10. PIPAMPERONE [Interacting]
     Active Substance: PIPAMPERONE
     Indication: PRODUCT USED FOR UNKNOWN INDICATION
     Route: 048
     Dates: start: 20171129
  11. ENTRESTO [Interacting]
     Active Substance: SACUBITRIL\VALSARTAN
     Indication: CARDIAC DISORDER
     Dosage: FOR YEARS
     Route: 048
     Dates: end: 20171208
  12. SALBUTAMOL [Concomitant]
     Active Substance: ALBUTEROL
     Dosage: FOR YEARS
     Route: 048

REACTIONS (4)
  - Loss of consciousness [Recovered/Resolved]
  - Hypotension [Recovered/Resolved]
  - Drug interaction [Recovered/Resolved]
  - Dizziness [Recovered/Resolved]

NARRATIVE: CASE EVENT DATE: 2017
